FAERS Safety Report 10657090 (Version 1)
Quarter: 2014Q4

REPORT INFORMATION
  Report Type: Report from Study
  Country: US (occurrence: US)
  Receive Date: 20141217
  Receipt Date: 20141217
  Transmission Date: 20150529
  Serious: Yes (Hospitalization)
  Sender: FDA-Public Use
  Company Number: US-BIOGENIDEC-2014BI129361

PATIENT
  Age: 40 Year
  Sex: Female

DRUGS (2)
  1. TECFIDERA [Suspect]
     Active Substance: DIMETHYL FUMARATE
     Indication: MULTIPLE SCLEROSIS
     Route: 048
     Dates: start: 20141101, end: 20141102
  2. REBIF [Concomitant]
     Active Substance: INTERFERON BETA-1A

REACTIONS (2)
  - Pneumonia [Unknown]
  - Immune system disorder [Unknown]

NARRATIVE: CASE EVENT DATE: 201411
